FAERS Safety Report 4969350-4 (Version None)
Quarter: 2006Q2

REPORT INFORMATION
  Report Type: 
  Country: None (occurrence: None)
  Receive Date: 20060405
  Receipt Date: 20060327
  Transmission Date: 20061013
  Serious: Yes (Death, Other)
  Sender: FDA-Public Use
  Company Number: 163-20785-06030006

PATIENT
  Age: 76 Year
  Sex: Male

DRUGS (2)
  1. THALOMID [Suspect]
     Indication: MULTIPLE MYELOMA
     Dosage: 50- 200 MG, QD, ORAL
     Route: 048
     Dates: start: 20030826, end: 20050524
  2. PULSE DECARDRON (DEXAMETHASONE) [Concomitant]

REACTIONS (4)
  - CARDIAC FAILURE CONGESTIVE [None]
  - DISEASE PROGRESSION [None]
  - ISCHAEMIC CARDIOMYOPATHY [None]
  - NEUROPATHY [None]
